FAERS Safety Report 21401847 (Version 2)
Quarter: 2025Q4

REPORT INFORMATION
  Report Type: Report from Study
  Country: EU (occurrence: EU)
  Receive Date: 20221003
  Receipt Date: 20251008
  Transmission Date: 20260118
  Serious: Yes (Other)
  Sender: AUROBINDO
  Company Number: EU-GLAXOSMITHKLINE-CZ2022EME132254

PATIENT
  Age: 42 Year
  Sex: Female

DRUGS (22)
  1. SUMATRIPTAN [Suspect]
     Active Substance: SUMATRIPTAN
     Indication: Migraine
     Dosage: 50 MILLIGRAM, ONCE A DAY
     Route: 065
  2. SUMATRIPTAN [Suspect]
     Active Substance: SUMATRIPTAN
     Indication: Analgesic therapy
  3. NAPROXEN [Suspect]
     Active Substance: NAPROXEN
     Indication: Analgesic therapy
     Dosage: UNK (10-12/MONTH)
     Route: 065
  4. NAPROXEN [Suspect]
     Active Substance: NAPROXEN
     Indication: Migraine
  5. IBUPROFEN [Suspect]
     Active Substance: IBUPROFEN
     Indication: Migraine
     Dosage: UNK
     Route: 065
  6. AMITRIPTYLINE [Suspect]
     Active Substance: AMITRIPTYLINE
     Indication: Analgesic therapy
     Dosage: 25 MILLIGRAM, ONCE A DAY
     Route: 065
  7. AMITRIPTYLINE [Suspect]
     Active Substance: AMITRIPTYLINE
     Indication: Migraine
  8. VENLAFAXINE [Suspect]
     Active Substance: VENLAFAXINE HYDROCHLORIDE
     Indication: Migraine
     Dosage: UNK
     Route: 065
  9. VENLAFAXINE [Suspect]
     Active Substance: VENLAFAXINE HYDROCHLORIDE
     Indication: Analgesic therapy
  10. INDOMETHACIN [Suspect]
     Active Substance: INDOMETHACIN
     Indication: Migraine
     Dosage: UNK (20/MONTH)
     Route: 065
  11. INDOMETHACIN [Suspect]
     Active Substance: INDOMETHACIN
     Indication: Analgesic therapy
  12. TOPIRAMATE [Suspect]
     Active Substance: TOPIRAMATE
     Indication: Migraine
     Dosage: 75 MILLIGRAM, ONCE A DAY
     Route: 065
  13. TOPIRAMATE [Suspect]
     Active Substance: TOPIRAMATE
     Indication: Analgesic therapy
  14. CINNARIZINE [Suspect]
     Active Substance: CINNARIZINE
     Indication: Analgesic therapy
     Dosage: 100 MILLIGRAM, ONCE A DAY (FOR 2.5 YEARS)
     Route: 065
  15. CINNARIZINE [Suspect]
     Active Substance: CINNARIZINE
     Indication: Migraine
  16. ACETAMINOPHEN [Suspect]
     Active Substance: ACETAMINOPHEN
     Indication: Migraine
     Dosage: UNK
     Route: 065
  17. METAMIZOLE SODIUM\PITOFENONE HYDROCHLORIDE [Suspect]
     Active Substance: METAMIZOLE SODIUM\PITOFENONE HYDROCHLORIDE
     Indication: Migraine
     Dosage: UNK
     Route: 065
  18. ELETRIPTAN [Suspect]
     Active Substance: ELETRIPTAN
     Indication: Migraine
     Dosage: UNK
     Route: 065
  19. ELETRIPTAN [Suspect]
     Active Substance: ELETRIPTAN
     Indication: Analgesic therapy
  20. VALPROATE SODIUM [Suspect]
     Active Substance: VALPROATE SODIUM
     Indication: Migraine
     Dosage: CONTROLLED RELEASE IN A DOSE OF 2? 500 MG
     Route: 065
     Dates: start: 201910, end: 201911
  21. VALPROATE SODIUM [Suspect]
     Active Substance: VALPROATE SODIUM
     Indication: Prophylaxis
     Dosage: 25 MILLIGRAM, ONCE A DAY
     Route: 065
  22. FREMANEZUMAB [Concomitant]
     Active Substance: FREMANEZUMAB
     Indication: Migraine
     Dosage: 225 MILLIGRAM, ONCE A MONTH
     Route: 058

REACTIONS (4)
  - Drug dependence [Recovering/Resolving]
  - Toxicity to various agents [Recovering/Resolving]
  - Medication overuse headache [Recovering/Resolving]
  - Treatment noncompliance [Unknown]
